FAERS Safety Report 11525467 (Version 1)
Quarter: 2015Q3

REPORT INFORMATION
  Report Type: Spontaneous
  Country: US (occurrence: US)
  Receive Date: 20150918
  Receipt Date: 20150918
  Transmission Date: 20151125
  Serious: Yes (Hospitalization)
  Sender: FDA-Public Use
  Company Number: US-GLAXOSMITHKLINE-US2015133078

PATIENT
  Sex: Male

DRUGS (2)
  1. WELLBUTRIN [Suspect]
     Active Substance: BUPROPION HYDROCHLORIDE
     Indication: BIPOLAR DISORDER
     Route: 048
     Dates: start: 201203
  2. SEROQUEL [Concomitant]
     Active Substance: QUETIAPINE FUMARATE

REACTIONS (8)
  - Mental disorder [Recovered/Resolved]
  - Visual impairment [Recovered/Resolved]
  - Psychotic disorder [Recovered/Resolved]
  - Energy increased [Unknown]
  - Paranoia [Recovered/Resolved]
  - Excessive exercise [Recovered/Resolved]
  - Hallucination [Recovered/Resolved]
  - Sensory level abnormal [Recovered/Resolved]
